FAERS Safety Report 22067065 (Version 5)
Quarter: 2023Q4

REPORT INFORMATION
  Report Type: Report from Study
  Country: US (occurrence: US)
  Receive Date: 20230306
  Receipt Date: 20231218
  Transmission Date: 20240110
  Serious: No
  Sender: FDA-Public Use
  Company Number: US-ACADIA PHARMACEUTICALS INC.-ACA-2023-PIM-000602

PATIENT
  Sex: Male

DRUGS (5)
  1. NUPLAZID [Suspect]
     Active Substance: PIMAVANSERIN TARTRATE
     Indication: Parkinson^s disease psychosis
     Dosage: 34 MILLIGRAM, QD
     Route: 048
     Dates: start: 20230203
  2. CARBIDOPA LEVODOPA [Concomitant]
     Active Substance: CARBIDOPA\LEVODOPA
  3. TAMSULOSIN [Concomitant]
     Active Substance: TAMSULOSIN
  4. FINASTERIDE [Concomitant]
     Active Substance: FINASTERIDE
  5. PEPCID [Concomitant]
     Active Substance: FAMOTIDINE

REACTIONS (9)
  - General physical health deterioration [Not Recovered/Not Resolved]
  - Tremor [Recovered/Resolved]
  - Malaise [Not Recovered/Not Resolved]
  - Bradykinesia [Not Recovered/Not Resolved]
  - Throat tightness [Recovered/Resolved]
  - Hallucination, visual [Recovered/Resolved]
  - Hallucination [Not Recovered/Not Resolved]
  - Gait disturbance [Not Recovered/Not Resolved]
  - Hallucination [Unknown]
